FAERS Safety Report 9259628 (Version 1)
Quarter: 2013Q2

REPORT INFORMATION
  Report Type: Spontaneous
  Country: FR (occurrence: FR)
  Receive Date: 20130429
  Receipt Date: 20130429
  Transmission Date: 20140414
  Serious: Yes (Hospitalization, Disabling)
  Sender: FDA-Public Use
  Company Number: FR-UCBSA-084190

PATIENT
  Age: 11 Year
  Sex: Male
  Weight: 25.4 kg

DRUGS (9)
  1. KEPPRA [Suspect]
     Indication: EPILEPSY
     Route: 048
     Dates: start: 20120221, end: 201212
  2. DEPAKINE [Suspect]
     Indication: EPILEPSY
     Route: 048
     Dates: end: 201202
  3. DEPAKINE [Suspect]
     Indication: EPILEPSY
     Dosage: UNKNOWN DOSE
     Route: 048
     Dates: start: 201202, end: 201212
  4. DEPAKINE [Suspect]
     Indication: EPILEPSY
     Dosage: 250MG IN THE MORNING AND 500MG AT NIGHT
     Route: 048
     Dates: start: 201212
  5. NEURONTIN [Suspect]
     Indication: EPILEPSY
     Route: 048
     Dates: end: 201202
  6. NEURONTIN [Suspect]
     Indication: EPILEPSY
     Dosage: DOSE INCREASED
     Route: 048
     Dates: start: 201202
  7. URBANYL [Suspect]
     Indication: EPILEPSY
     Dosage: DAILY DOSE : 5 MG
     Route: 048
     Dates: end: 201202
  8. URBANYL [Suspect]
     Indication: EPILEPSY
     Dosage: DOSE INCREASED
     Route: 048
     Dates: start: 201202
  9. BOTOX [Suspect]
     Indication: SALIVARY HYPERSECRETION
     Dates: end: 20120315

REACTIONS (2)
  - Gingival hyperplasia [Recovering/Resolving]
  - Respiratory distress [Unknown]
